FAERS Safety Report 17089713 (Version 2)
Quarter: 2020Q1

REPORT INFORMATION
  Report Type: Spontaneous
  Country: US (occurrence: US)
  Receive Date: 20191128
  Receipt Date: 20200123
  Transmission Date: 20200409
  Serious: No
  Sender: FDA-Public Use
  Company Number: US-009507513-1911USA008887

PATIENT
  Age: 20 Year
  Sex: Female
  Weight: 62.13 kg

DRUGS (1)
  1. NEXPLANON [Suspect]
     Active Substance: ETONOGESTREL
     Indication: CONTRACEPTION
     Dosage: 1 IMPLANT IN LEFT ARM
     Route: 059
     Dates: start: 20191108

REACTIONS (4)
  - Pruritus [Recovered/Resolved]
  - Circumstance or information capable of leading to medication error [Unknown]
  - Rash [Recovered/Resolved]
  - Transcription medication error [Unknown]

NARRATIVE: CASE EVENT DATE: 20191108
